FAERS Safety Report 15450782 (Version 1)
Quarter: 2018Q4

REPORT INFORMATION
  Report Type: Spontaneous
  Country: GB (occurrence: GB)
  Receive Date: 20181001
  Receipt Date: 20181001
  Transmission Date: 20190204
  Serious: Yes (Life-Threatening, Hospitalization)
  Sender: FDA-Public Use
  Company Number: GB-TEVA-2018-GB-959347

PATIENT
  Age: 64 Year
  Sex: Male

DRUGS (5)
  1. METFORMIN [Suspect]
     Active Substance: METFORMIN HYDROCHLORIDE
     Indication: INTENTIONAL OVERDOSE
     Route: 048
  2. RISPERIDONE. [Suspect]
     Active Substance: RISPERIDONE
     Indication: INTENTIONAL OVERDOSE
     Route: 048
  3. NIMODIPINE. [Suspect]
     Active Substance: NIMODIPINE
     Indication: INTENTIONAL OVERDOSE
     Route: 048
  4. PRAVASTATIN. [Suspect]
     Active Substance: PRAVASTATIN
     Indication: INTENTIONAL OVERDOSE
     Route: 048
  5. RANITIDINE. [Suspect]
     Active Substance: RANITIDINE
     Indication: INTENTIONAL OVERDOSE
     Route: 048

REACTIONS (11)
  - Toxicity to various agents [Recovering/Resolving]
  - Brain injury [Recovering/Resolving]
  - Intentional overdose [Recovering/Resolving]
  - Cardiogenic shock [Recovering/Resolving]
  - Cerebral ischaemia [Recovering/Resolving]
  - Cognitive disorder [Recovering/Resolving]
  - Lactic acidosis [Unknown]
  - Sinus bradycardia [Recovering/Resolving]
  - Hypotension [Recovering/Resolving]
  - Polyneuropathy [Unknown]
  - Renal failure [Unknown]
